FAERS Safety Report 19509610 (Version 4)
Quarter: 2024Q1

REPORT INFORMATION
  Report Type: Report from Study
  Country: US (occurrence: US)
  Receive Date: 20210709
  Receipt Date: 20240219
  Transmission Date: 20240409
  Serious: Yes (Other)
  Sender: FDA-Public Use
  Company Number: US-ACADIA PHARMACEUTICALS INC.-ACA-2021-PIM-002270

PATIENT
  Sex: Female

DRUGS (4)
  1. NUPLAZID [Suspect]
     Active Substance: PIMAVANSERIN TARTRATE
     Indication: Parkinson^s disease psychosis
     Dosage: 34 MILLIGRAM, QD
     Route: 048
     Dates: start: 202012
  2. NUPLAZID [Suspect]
     Active Substance: PIMAVANSERIN TARTRATE
     Dosage: 34 MILLIGRAM QD (34MG+20MG)
     Route: 048
  3. NUPLAZID [Suspect]
     Active Substance: PIMAVANSERIN TARTRATE
     Indication: Parkinson^s disease psychosis
     Dosage: 20 MILLIGRAM BID (34MG+20MG BID)
     Route: 048
  4. DOXYCYCLINE HYCLATE [Concomitant]
     Active Substance: DOXYCYCLINE HYCLATE

REACTIONS (12)
  - Cerebral haemorrhage [Unknown]
  - Delusion [Unknown]
  - Hallucination [Unknown]
  - Product dose omission issue [Unknown]
  - Infection [Not Recovered/Not Resolved]
  - Amnesia [Not Recovered/Not Resolved]
  - Wrist fracture [Unknown]
  - Memory impairment [Unknown]
  - Incorrect dose administered [Unknown]
  - Overdose [Unknown]
  - Fall [Unknown]
  - Hallucination [Unknown]
